FAERS Safety Report 23070547 (Version 1)
Quarter: 2023Q4

REPORT INFORMATION
  Report Type: Spontaneous
  Country: US (occurrence: None)
  Receive Date: 20231013
  Receipt Date: 20231013
  Transmission Date: 20240110
  Serious: No
  Sender: FDA-Public Use
  Company Number: None

PATIENT
  Age: 84 Year
  Sex: Female
  Weight: 97.98 kg

DRUGS (2)
  1. INFLECTRA [Suspect]
     Active Substance: INFLIXIMAB-DYYB
     Indication: Psoriatic arthropathy
     Dosage: FREQUENCY : AS DIRECTED;?NFUSE 500MG INTRAVENOUSLY AT WEEK 0, 2 AND WEEK 6 AS DIRECTED.?
     Route: 042
     Dates: start: 202304
  2. INFLECTRA [Suspect]
     Active Substance: INFLIXIMAB-DYYB
     Indication: Rheumatoid arthritis

REACTIONS (2)
  - Fall [None]
  - Pneumonia [None]
